FAERS Safety Report 6423869-8 (Version None)
Quarter: 2009Q4

REPORT INFORMATION
  Report Type: 
  Country: None (occurrence: None)
  Receive Date: 20091030
  Receipt Date: 20091030
  Transmission Date: 20100525
  Serious: Yes (Hospitalization, Other)
  Sender: FDA-Public Use
  Company Number: None

PATIENT
  Age: 53 Year
  Sex: Male
  Weight: 113.5 kg

DRUGS (1)
  1. AMPICILLIN AND SULBACTAM [Suspect]
     Indication: CELLULITIS
     Dosage: 1.5 MG QID IV
     Route: 042
     Dates: start: 20090701, end: 20090703

REACTIONS (1)
  - ANGIOEDEMA [None]
